FAERS Safety Report 10966992 (Version 1)
Quarter: 2015Q1

REPORT INFORMATION
  Report Type: Spontaneous
  Country: AU (occurrence: AU)
  Receive Date: 20150330
  Receipt Date: 20150330
  Transmission Date: 20150721
  Serious: Yes (Other)
  Sender: FDA-Public Use
  Company Number: ALCN2015AU001854

PATIENT
  Sex: Male

DRUGS (1)
  1. PATANOL [Suspect]
     Active Substance: OLOPATADINE HYDROCHLORIDE
     Dosage: 1 DF, UNK
     Route: 047

REACTIONS (2)
  - Anaphylactic reaction [Unknown]
  - Eye swelling [Unknown]
